FAERS Safety Report 13511532 (Version 1)
Quarter: 2017Q2

REPORT INFORMATION
  Report Type: Spontaneous
  Country: US (occurrence: US)
  Receive Date: 20170503
  Receipt Date: 20170503
  Transmission Date: 20170830
  Serious: Yes (Disabling)
  Sender: FDA-Public Use
  Company Number: None

PATIENT
  Age: 44 Year
  Sex: Female
  Weight: 89.1 kg

DRUGS (21)
  1. MELATONIN [Concomitant]
     Active Substance: MELATONIN
  2. C-PAP [Concomitant]
  3. SINGULAIR [Concomitant]
     Active Substance: MONTELUKAST SODIUM
  4. BIOTIN [Concomitant]
     Active Substance: BIOTIN
  5. COLOPLAST MIO OSTOMY SYSTEM [Concomitant]
  6. METHOTREXATE. [Concomitant]
     Active Substance: METHOTREXATE
  7. GAPAPENTIN [Concomitant]
  8. HYDROCORTISONE CREAM [Concomitant]
     Active Substance: HYDROCORTISONE
  9. NORTRIPTYLIN [Concomitant]
     Active Substance: NORTRIPTYLINE
  10. BREO ELLIPTA [Concomitant]
     Active Substance: FLUTICASONE FUROATE\VILANTEROL TRIFENATATE
  11. EPIPEN [Concomitant]
     Active Substance: EPINEPHRINE
  12. TYLENOL [Concomitant]
     Active Substance: ACETAMINOPHEN
  13. VITAMINC [Concomitant]
  14. ENTYVIO [Suspect]
     Active Substance: VEDOLIZUMAB
     Indication: CROHN^S DISEASE
     Dosage: IV EVERY 8 WEEKS?
     Route: 042
     Dates: start: 20160708, end: 20170414
  15. OXCYCODONE [Concomitant]
  16. ZYRTEC [Concomitant]
     Active Substance: CETIRIZINE HYDROCHLORIDE
  17. PROAIR HFA [Concomitant]
     Active Substance: ALBUTEROL SULFATE
  18. VITAMIN D3 [Concomitant]
     Active Substance: CHOLECALCIFEROL
  19. VITAMIN B12 [Concomitant]
     Active Substance: CYANOCOBALAMIN
  20. BENADRYL [Concomitant]
     Active Substance: DIPHENHYDRAMINE HYDROCHLORIDE
  21. MULTI-VITAMIN [Concomitant]
     Active Substance: .ALPHA.-TOCOPHEROL ACETATE, DL-\ASCORBIC ACID\CYANOCOBALAMIN\FLUORIDE ION\FOLIC ACID\NIACIN\PYRIDOXINE\RIBOFLAVIN\THIAMINE\VITAMIN A\VITAMIN D

REACTIONS (13)
  - Abdominal distension [None]
  - Rash [None]
  - Weight increased [None]
  - Upper respiratory tract infection [None]
  - Sinusitis [None]
  - Flushing [None]
  - Fatigue [None]
  - Dyspnoea [None]
  - Oedema peripheral [None]
  - Skin disorder [None]
  - Viral upper respiratory tract infection [None]
  - Muscle spasms [None]
  - Vasculitis [None]

NARRATIVE: CASE EVENT DATE: 20170418
